FAERS Safety Report 5158734-X (Version None)
Quarter: 2006Q4

REPORT INFORMATION
  Report Type: 
  Country: None (occurrence: None)
  Receive Date: 20061128
  Receipt Date: 20061124
  Transmission Date: 20070319
  Serious: Yes (Disabling)
  Sender: FDA-Public Use
  Company Number: CN-GLAXOSMITHKLINE-B0448161A

PATIENT
  Age: 35 Year
  Sex: Female

DRUGS (2)
  1. SEROXAT [Suspect]
     Route: 048
  2. DIAZEPAM [Concomitant]
     Indication: DRUG USE FOR UNKNOWN INDICATION
     Route: 065

REACTIONS (5)
  - BLINDNESS UNILATERAL [None]
  - CONDITION AGGRAVATED [None]
  - MACULAR OEDEMA [None]
  - RETINAL DETACHMENT [None]
  - VISION BLURRED [None]
